FAERS Safety Report 7778181-1 (Version None)
Quarter: 2011Q3

REPORT INFORMATION
  Report Type: 
  Country: None (occurrence: None)
  Receive Date: 20110926
  Receipt Date: 20110920
  Transmission Date: 20111222
  Serious: Yes (Hospitalization)
  Sender: FDA-Public Use
  Company Number: US-BAYER-2011-063899

PATIENT
  Age: 64 Year
  Sex: Female

DRUGS (6)
  1. NEXAVAR [Suspect]
     Dosage: 400 MG, BID
     Route: 048
     Dates: start: 20110701, end: 20110801
  2. NEXAVAR [Suspect]
     Dosage: 200 MG, BID
     Dates: start: 20110823
  3. NEXAVAR [Suspect]
     Dosage: 200 MG, BID
     Dates: start: 20110714
  4. NEXAVAR [Suspect]
     Indication: THYROID CANCER
     Dosage: 600 MG, (200 MG IN THE MORNING AND 400 MG IN THE AFTERNOON)
     Route: 048
     Dates: start: 20110714, end: 20110701
  5. NEXAVAR [Suspect]
     Dosage: 600 MG, QD (400 MG EVERY AM AND 200 MG EVERY PM)
     Route: 048
     Dates: start: 20110809
  6. BENADRYL [Concomitant]

REACTIONS (10)
  - RASH PRURITIC [None]
  - DEHYDRATION [None]
  - BLISTER [None]
  - DIARRHOEA [None]
  - EXCORIATION [None]
  - FEELING ABNORMAL [None]
  - CONFUSIONAL STATE [None]
  - KIDNEY INFECTION [None]
  - BLOOD GLUCOSE INCREASED [None]
  - BLOOD PRESSURE INCREASED [None]
